FAERS Safety Report 5283781-7 (Version None)
Quarter: 2007Q1

REPORT INFORMATION
  Report Type: 
  Country: None (occurrence: None)
  Receive Date: 20061226
  Receipt Date: 20060302
  Transmission Date: 20070707
  Serious: Yes (Other)
  Sender: FDA-Public Use
  Company Number: 2006S1000054

PATIENT
  Age: 63 Year
  Sex: Male

DRUGS (1)
  1. ACITRETIN [Suspect]
     Indication: KERATOSIS FOLLICULAR
     Dosage: 10 MG; QD; PO
     Route: 048
     Dates: start: 20051201

REACTIONS (1)
  - OCULAR ICTERUS [None]
